FAERS Safety Report 12986319 (Version 2)
Quarter: 2016Q4

REPORT INFORMATION
  Report Type: Report from Study
  Country: BR (occurrence: BR)
  Receive Date: 20161130
  Receipt Date: 20161226
  Transmission Date: 20170207
  Serious: Yes (Hospitalization, Other)
  Sender: FDA-Public Use
  Company Number: PHHY2016BR086630

PATIENT
  Sex: Male
  Weight: 92 kg

DRUGS (3)
  1. EXJADE [Suspect]
     Active Substance: DEFERASIROX
     Indication: MYELODYSPLASTIC SYNDROME
     Dosage: 10 MG/KG, QD (1000 MG DAILY)
     Route: 048
  2. EXJADE [Suspect]
     Active Substance: DEFERASIROX
     Dosage: 2500 MG, UNK
     Route: 048
  3. EXJADE [Suspect]
     Active Substance: DEFERASIROX
     Dosage: 1000 MG, UNK (2 TABS OF 500 MG)
     Route: 048

REACTIONS (11)
  - Weight decreased [Unknown]
  - Memory impairment [Unknown]
  - Asthenia [Recovering/Resolving]
  - Diarrhoea [Unknown]
  - Lung disorder [Unknown]
  - Haemoglobin decreased [Unknown]
  - Dizziness [Unknown]
  - Malaise [Unknown]
  - Serum ferritin increased [Unknown]
  - Pneumonia [Unknown]
  - Diarrhoea [Recovered/Resolved]
